FAERS Safety Report 5330696-1 (Version None)
Quarter: 2007Q2

REPORT INFORMATION
  Report Type: 
  Country: None (occurrence: None)
  Receive Date: 20070522
  Receipt Date: 20070511
  Transmission Date: 20071010
  Serious: Yes (Hospitalization, Other)
  Sender: FDA-Public Use
  Company Number: PHEH2007US07294

PATIENT
  Age: 48 Year
  Sex: Female
  Weight: 67.573 kg

DRUGS (8)
  1. COMBIPATCH [Suspect]
     Indication: MENOPAUSE
     Dosage: 0.5MG UNK
     Dates: start: 19990501, end: 20001101
  2. PREMPRO [Suspect]
     Indication: MENOPAUSE
     Dosage: 0.625MG QD
     Dates: start: 19960101, end: 19990301
  3. PREFEST [Suspect]
     Indication: MENOPAUSE
     Dates: start: 20001201, end: 20020701
  4. XANAX [Concomitant]
     Indication: ANXIETY
     Dosage: 0.25MG HS
     Dates: start: 19860101
  5. PAXIL [Concomitant]
     Indication: ANXIETY
     Dosage: 20MG UNK
     Dates: start: 19960101
  6. TRAZODONE HCL [Concomitant]
     Indication: ANXIETY
     Dates: start: 19960101
  7. ACIPHEX [Concomitant]
     Indication: ULCER
     Dosage: 20MG
     Dates: start: 19960101
  8. CLARITIN [Concomitant]
     Indication: HYPERSENSITIVITY
     Dosage: 10MG UNK
     Dates: start: 19940101

REACTIONS (16)
  - ABSCESS BACTERIAL [None]
  - ANXIETY [None]
  - BODY TEMPERATURE INCREASED [None]
  - BREAST CANCER STAGE I [None]
  - BREAST MASS [None]
  - CELLULITIS STAPHYLOCOCCAL [None]
  - CHEMOTHERAPY [None]
  - DEPRESSION [None]
  - EXCORIATION [None]
  - OEDEMA PERIPHERAL [None]
  - PAIN IN EXTREMITY [None]
  - PELVIC PAIN [None]
  - RADIOTHERAPY [None]
  - TRANSIENT ACANTHOLYTIC DERMATOSIS [None]
  - TUMOUR EXCISION [None]
  - UTERINE HAEMORRHAGE [None]
